FAERS Safety Report 17888195 (Version 1)
Quarter: 2020Q2

REPORT INFORMATION
  Report Type: Spontaneous
  Country: US (occurrence: US)
  Receive Date: 20200611
  Receipt Date: 20200611
  Transmission Date: 20200714
  Serious: No
  Sender: FDA-Public Use
  Company Number: None

PATIENT
  Age: 52 Year
  Sex: Female
  Weight: 71.8 kg

DRUGS (1)
  1. REMDESIVIR. [Suspect]
     Active Substance: REMDESIVIR
     Route: 042
     Dates: start: 20200606, end: 20200610

REACTIONS (2)
  - Product preparation error [None]
  - Product preparation issue [None]

NARRATIVE: CASE EVENT DATE: 20200609
